FAERS Safety Report 18515688 (Version 1)
Quarter: 2020Q4

REPORT INFORMATION
  Report Type: Spontaneous
  Country: US (occurrence: US)
  Receive Date: 20201117
  Receipt Date: 20201117
  Transmission Date: 20210114
  Serious: Yes (Life-Threatening, Other)
  Sender: FDA-Public Use
  Company Number: None

PATIENT
  Age: 29 Year
  Sex: Male
  Weight: 63.5 kg

DRUGS (11)
  1. ZOFRAN [Concomitant]
     Active Substance: ONDANSETRON HYDROCHLORIDE
  2. MAGNESIUM [Concomitant]
     Active Substance: MAGNESIUM
  3. VYEPTI [Suspect]
     Active Substance: EPTINEZUMAB-JJMR
     Indication: MIGRAINE PROPHYLAXIS
     Dosage: ?          QUANTITY:100 MG MILLIGRAM(S);OTHER FREQUENCY:ONCE EVERY 3 MONTH;?
     Route: 042
     Dates: start: 20201010, end: 20201010
  4. ELAVIL [Concomitant]
     Active Substance: AMITRIPTYLINE HYDROCHLORIDE
  5. GABAPENTIN. [Concomitant]
     Active Substance: GABAPENTIN
  6. KLONOPIN [Concomitant]
     Active Substance: CLONAZEPAM
  7. ZOMIG [Concomitant]
     Active Substance: ZOLMITRIPTAN
  8. LEXAPRO [Concomitant]
     Active Substance: ESCITALOPRAM OXALATE
  9. ALPRAZOLAM. [Concomitant]
     Active Substance: ALPRAZOLAM
  10. PHENERGAN [Concomitant]
     Active Substance: PROMETHAZINE HYDROCHLORIDE
  11. B 6 100 MG [Concomitant]

REACTIONS (5)
  - Headache [None]
  - Throat tightness [None]
  - Rash [None]
  - Anaphylactic shock [None]
  - Infusion related reaction [None]

NARRATIVE: CASE EVENT DATE: 20201010
